FAERS Safety Report 8479806-8 (Version None)
Quarter: 2012Q2

REPORT INFORMATION
  Report Type: 
  Country: None (occurrence: None)
  Receive Date: 20120629
  Receipt Date: 20120627
  Transmission Date: 20120825
  Serious: No
  Sender: FDA-Public Use
  Company Number: US-TEVA-345703USA

PATIENT
  Sex: Female

DRUGS (2)
  1. BIRTH CONTROL [Suspect]
     Indication: PRODUCT USED FOR UNKNOWN INDICATION
  2. PLAN B ONE-STEP [Suspect]
     Indication: POST COITAL CONTRACEPTION
     Dosage: 1.5 MILLIGRAM;
     Route: 048

REACTIONS (4)
  - BREAST PAIN [None]
  - MUSCLE SPASMS [None]
  - BREAST ENLARGEMENT [None]
  - MENSTRUATION IRREGULAR [None]
